FAERS Safety Report 16351371 (Version 1)
Quarter: 2019Q2

REPORT INFORMATION
  Report Type: Spontaneous
  Country: CN (occurrence: CN)
  Receive Date: 20190524
  Receipt Date: 20190524
  Transmission Date: 20190711
  Serious: Yes (Hospitalization, Other)
  Sender: FDA-Public Use
  Company Number: CN-BRISTOL-MYERS SQUIBB COMPANY-BMS-2019-049249

PATIENT
  Age: 57 Year
  Sex: Male

DRUGS (2)
  1. GLIMEPIRIDE. [Concomitant]
     Active Substance: GLIMEPIRIDE
     Indication: TYPE 2 DIABETES MELLITUS
     Dosage: 2 MILLIGRAM, QD
     Route: 065
     Dates: start: 2014
  2. GLUCOPHAGE [Suspect]
     Active Substance: METFORMIN HYDROCHLORIDE
     Indication: TYPE 2 DIABETES MELLITUS
     Dosage: 0.5 GRAM, TID= 1 IN 8 HOURS
     Route: 048
     Dates: start: 2014

REACTIONS (4)
  - Polydipsia [Unknown]
  - Dry mouth [Unknown]
  - Blood glucose increased [Unknown]
  - Ill-defined disorder [Unknown]

NARRATIVE: CASE EVENT DATE: 201904
